FAERS Safety Report 16937351 (Version 2)
Quarter: 2020Q1

REPORT INFORMATION
  Report Type: Spontaneous
  Country: FR (occurrence: FR)
  Receive Date: 20191019
  Receipt Date: 20200108
  Transmission Date: 20200409
  Serious: Yes (Death, Life-Threatening)
  Sender: FDA-Public Use
  Company Number: FR-SUN PHARMACEUTICAL INDUSTRIES LTD-2019R1-223783

PATIENT
  Age: 54 Year
  Sex: Female
  Weight: 46 kg

DRUGS (5)
  1. DESLORATADINE. [Suspect]
     Active Substance: DESLORATADINE
     Indication: TOXICITY TO VARIOUS AGENTS
     Dosage: 65 MILLIGRAM, 1 TOTAL (13 COMPRIMES DE 5MG EN UNE SEULE PRISE ; IN TOTAL)
     Route: 048
     Dates: start: 20190809
  2. DIFFU K, GELULE [Suspect]
     Active Substance: POTASSIUM CHLORIDE
     Indication: TOXICITY TO VARIOUS AGENTS
     Dosage: 13 DOSAGE FORM (13 GELULES DE 600MG EN UNE SEULE PRISE)
     Route: 048
     Dates: start: 20190809
  3. MIANSERINE [Suspect]
     Active Substance: MIANSERIN HYDROCHLORIDE
     Indication: TOXICITY TO VARIOUS AGENTS
     Dosage: 180 MILLIGRAM (3 COMPRIMES DE 60 MG EN UNE SEULE PRISE)
     Route: 048
     Dates: start: 20190809
  4. ZOLPIDEM [Suspect]
     Active Substance: ZOLPIDEM TARTRATE
     Indication: TOXICITY TO VARIOUS AGENTS
     Dosage: 140 MILLIGRAM, 14 COMPRIMES DE 10 MG EN UNE SEULE PRISE; IN TOTAL
     Route: 048
     Dates: start: 20190809
  5. GABAPENTINE [Suspect]
     Active Substance: GABAPENTIN
     Indication: PRODUCT USED FOR UNKNOWN INDICATION
     Dosage: 6000 MILLIGRAM (20 GELULES DE 300MG EN UNE SEULE PRISE)
     Route: 048
     Dates: start: 20190809

REACTIONS (6)
  - Cardio-respiratory arrest [Fatal]
  - Hyperkalaemia [Fatal]
  - Arrhythmia [Fatal]
  - Disseminated intravascular coagulation [Fatal]
  - Toxicity to various agents [Fatal]
  - Respiratory disorder [Fatal]

NARRATIVE: CASE EVENT DATE: 20190809
